FAERS Safety Report 7170874-2 (Version None)
Quarter: 2010Q4

REPORT INFORMATION
  Report Type: 
  Country: None (occurrence: None)
  Receive Date: 20101206
  Receipt Date: 20101122
  Transmission Date: 20110411
  Serious: Yes (Other)
  Sender: FDA-Public Use
  Company Number: 2010JP006860

PATIENT
  Age: 51 Year
  Sex: Female

DRUGS (2)
  1. PROGRAF [Suspect]
     Indication: LIVER TRANSPLANT
     Dosage: ORAL
     Route: 048
  2. METHYLPREDNISOLONE [Concomitant]

REACTIONS (5)
  - BLOOD PRESSURE DECREASED [None]
  - ENDOMETRIAL HYPERPLASIA [None]
  - NORMOCHROMIC NORMOCYTIC ANAEMIA [None]
  - PALLOR [None]
  - VAGINAL HAEMORRHAGE [None]
